FAERS Safety Report 8816222 (Version 1)
Quarter: 2012Q4

REPORT INFORMATION
  Report Type: 
  Country: US (occurrence: US)
  Receive Date: 20120930
  Receipt Date: 20120930
  Transmission Date: 20130627
  Serious: Yes (Other)
  Sender: FDA-Public Use
  Company Number: US-ELI_LILLY_AND_COMPANY-US200910007354

PATIENT
  Age: 43 Year
  Sex: Female

DRUGS (21)
  1. ZYPREXA [Suspect]
     Indication: BIPOLAR DISORDER
     Dosage: 1 D/F, UNK
     Dates: start: 20040810
  2. ZYPREXA [Interacting]
     Dosage: 5 mg, qd
     Dates: start: 20040810
  3. ZYPREXA [Interacting]
     Dosage: 15 mg, qd
  4. ZYPREXA [Interacting]
     Dosage: 20 mg, qd
  5. ZYPREXA [Interacting]
     Dosage: 10 mg, qd
  6. EFFEXOR XR [Concomitant]
     Dosage: 1 DF, unknown
  7. LAMICTAL [Concomitant]
     Dosage: 1 DF, unknown
  8. KLONOPIN [Concomitant]
     Dosage: 1 DF, unknown
  9. PROZAC [Concomitant]
     Dosage: 1 DF, unknown
  10. PRISTIQ [Concomitant]
     Dosage: 1 DF, unknown
  11. PRISTIQ [Concomitant]
     Dosage: 50 mg, bid
  12. SEROQUEL [Concomitant]
     Dosage: 1 DF, unknown
  13. BUSPIRONE [Concomitant]
     Dosage: 5 mg, bid
  14. TRILEPTAL [Concomitant]
     Dosage: 150 mg, unknown
  15. SYMBYAX [Concomitant]
     Dosage: 1 DF, unknown
  16. STRATTERA [Concomitant]
     Dosage: 1 DF, unknown
  17. STRATTERA [Concomitant]
     Dosage: 60 mg, bid
  18. ADDERALL [Concomitant]
     Dosage: 30 mg, qd
  19. TOPAMAX [Concomitant]
     Dosage: 25 mg, unknown
  20. DESOXYN [Concomitant]
     Dosage: 1 DF, unknown
  21. GABAPENTIN [Concomitant]
     Dosage: 400 mg, unknown

REACTIONS (17)
  - Polycythaemia vera [Unknown]
  - Weight increased [Recovered/Resolved]
  - Dermatitis [Unknown]
  - Weight decreased [Recovered/Resolved]
  - Dysuria [Unknown]
  - Hypoglycaemia [Unknown]
  - Tooth infection [Unknown]
  - Bronchitis [Unknown]
  - Gastrooesophageal reflux disease [Unknown]
  - Sinusitis [Unknown]
  - Urinary tract infection [Unknown]
  - Drug interaction [Unknown]
  - Hypertension [Unknown]
  - Hyperlipidaemia [Recovering/Resolving]
  - Hyperglycaemia [Recovering/Resolving]
  - Diabetes mellitus [Unknown]
  - Dizziness [Unknown]
